FAERS Safety Report 18176363 (Version 11)
Quarter: 2022Q2

REPORT INFORMATION
  Report Type: Report from Study
  Country: US (occurrence: US)
  Receive Date: 20200820
  Receipt Date: 20220607
  Transmission Date: 20220721
  Serious: Yes (Other)
  Sender: FDA-Public Use
  Company Number: US-SHIRE-US202025408

PATIENT
  Age: 43 Year
  Sex: Female
  Weight: 113 kg

DRUGS (34)
  1. HUMAN IMMUNOGLOBULIN G [Suspect]
     Active Substance: HUMAN IMMUNOGLOBULIN G
     Indication: Selective IgG subclass deficiency
     Dosage: 15 GRAM, 1X/WEEK
     Route: 058
     Dates: start: 20200724
  2. HUMAN IMMUNOGLOBULIN G [Suspect]
     Active Substance: HUMAN IMMUNOGLOBULIN G
     Indication: Immunodeficiency
  3. HUMAN IMMUNOGLOBULIN G [Suspect]
     Active Substance: HUMAN IMMUNOGLOBULIN G
     Indication: Primary immunodeficiency syndrome
  4. DIPHENHYDRAMINE [Concomitant]
     Active Substance: DIPHENHYDRAMINE
     Route: 065
  5. IMMUNE SUPPORT [Concomitant]
     Route: 065
  6. VALSARTAN [Concomitant]
     Active Substance: VALSARTAN
     Route: 065
  7. SYMBICORT [Concomitant]
     Active Substance: BUDESONIDE\FORMOTEROL FUMARATE DIHYDRATE
     Route: 065
  8. EPINEPHRINE [Concomitant]
     Active Substance: EPINEPHRINE
     Route: 065
  9. DYMISTA [Concomitant]
     Active Substance: AZELASTINE HYDROCHLORIDE\FLUTICASONE PROPIONATE
     Route: 065
  10. GABAPENTIN [Concomitant]
     Active Substance: GABAPENTIN
     Route: 065
  11. METOPROLOL TARTRATE [Concomitant]
     Active Substance: METOPROLOL TARTRATE
     Route: 065
  12. ACETAMINOPHEN [Concomitant]
     Active Substance: ACETAMINOPHEN
     Route: 065
  13. ALAVERT ALLERGY [Concomitant]
     Active Substance: LORATADINE
     Route: 065
  14. DICYCLOMINE [Concomitant]
     Active Substance: DICYCLOMINE HYDROCHLORIDE
     Route: 065
  15. NEXIUM [Concomitant]
     Active Substance: ESOMEPRAZOLE MAGNESIUM
     Route: 065
  16. DAYPRO [Concomitant]
     Active Substance: OXAPROZIN
     Route: 065
  17. OTEZLA [Concomitant]
     Active Substance: APREMILAST
     Route: 065
  18. PROAIR HFA [Concomitant]
     Active Substance: ALBUTEROL SULFATE
     Route: 065
  19. YAZ [Concomitant]
     Active Substance: DROSPIRENONE\ETHINYL ESTRADIOL
     Route: 065
  20. MONTELUKAST [Concomitant]
     Active Substance: MONTELUKAST SODIUM
     Route: 065
  21. LIDOCAINE [Concomitant]
     Active Substance: LIDOCAINE
     Route: 065
  22. BENADRYL [Concomitant]
     Active Substance: DIPHENHYDRAMINE HYDROCHLORIDE
     Indication: Premedication
     Route: 065
  23. HYDRATED [Concomitant]
     Indication: Premedication
     Route: 065
  24. HYDROCHLOROTHIAZIDE [Concomitant]
     Active Substance: HYDROCHLOROTHIAZIDE
     Route: 065
  25. HIZENTRA [Concomitant]
     Active Substance: HUMAN IMMUNOGLOBULIN G
  26. ATORVASTATIN CALCIUM [Concomitant]
     Active Substance: ATORVASTATIN CALCIUM
  27. TRELEGY ELLIPTA [Concomitant]
     Active Substance: FLUTICASONE FUROATE\UMECLIDINIUM BROMIDE\VILANTEROL TRIFENATATE
  28. VITAMIN C [Concomitant]
     Active Substance: ASCORBIC ACID
  29. ISOSORBIDE MONONITRATE [Concomitant]
     Active Substance: ISOSORBIDE MONONITRATE
  30. VITAMIN D3 [Concomitant]
     Active Substance: CHOLECALCIFEROL
  31. PROBIOTICS NOS [Concomitant]
     Active Substance: PROBIOTICS NOS
  32. VITAMINS [Concomitant]
     Active Substance: VITAMINS
  33. VITAMIN B12 [Concomitant]
     Active Substance: CYANOCOBALAMIN
  34. NITROGLYCERIN [Concomitant]
     Active Substance: NITROGLYCERIN

REACTIONS (22)
  - Autoimmune disorder [Unknown]
  - Kidney infection [Unknown]
  - Dermatitis contact [Unknown]
  - Headache [Unknown]
  - Infusion site erythema [Unknown]
  - Allergy to vaccine [Unknown]
  - Adverse food reaction [Unknown]
  - Blood pressure increased [Unknown]
  - Anxiety [Unknown]
  - Application site warmth [Unknown]
  - White blood cell count increased [Unknown]
  - Blood urine present [Unknown]
  - Sinusitis [Unknown]
  - Injection site scar [Unknown]
  - COVID-19 [Recovered/Resolved]
  - Atrioventricular block [Unknown]
  - Arthritis [Unknown]
  - Nausea [Unknown]
  - Vomiting [Unknown]
  - Fatigue [Unknown]
  - Wound infection [Unknown]
  - Seasonal allergy [Unknown]

NARRATIVE: CASE EVENT DATE: 20201123
